FAERS Safety Report 9106166 (Version 1)
Quarter: 2013Q1

REPORT INFORMATION
  Report Type: Spontaneous
  Country: SE (occurrence: SE)
  Receive Date: 20130221
  Receipt Date: 20130221
  Transmission Date: 20140127
  Serious: Yes (Hospitalization)
  Sender: FDA-Public Use
  Company Number: SE-TEVA-386245ISR

PATIENT
  Age: 81 Year
  Sex: Female

DRUGS (13)
  1. ENALAPRIL W/HYDROCHLOROTHIAZIDE [Suspect]
     Indication: HYPOTONIA
     Dates: end: 20121126
  2. DIGOXIN [Suspect]
     Indication: CARDIOMYOPATHY
     Dates: end: 20121126
  3. MOVICOL [Concomitant]
     Route: 048
  4. OMEPRAZOL [Concomitant]
  5. SIMVASTATIN [Concomitant]
  6. TRYPTIZOL [Concomitant]
     Route: 048
  7. WARAN [Concomitant]
     Route: 048
  8. CITODON [Concomitant]
     Route: 048
  9. IMDUR [Concomitant]
  10. STILNOCT [Concomitant]
     Route: 048
  11. ATENOLOL [Concomitant]
  12. PREDNISOLON [Concomitant]
  13. FURIX RETARD [Concomitant]
     Route: 048

REACTIONS (6)
  - Drug level increased [Unknown]
  - Nausea [Unknown]
  - Vomiting [Unknown]
  - Dehydration [Unknown]
  - Hypokalaemia [Unknown]
  - Hyponatraemia [Unknown]
